FAERS Safety Report 15963847 (Version 2)
Quarter: 2019Q1

REPORT INFORMATION
  Report Type: Report from Study
  Country: CA (occurrence: CA)
  Receive Date: 20190214
  Receipt Date: 20190301
  Transmission Date: 20190417
  Serious: Yes (Hospitalization)
  Sender: FDA-Public Use
  Company Number: CA-ACTELION-A-US2018-179754

PATIENT
  Sex: Female
  Weight: 90.7 kg

DRUGS (6)
  1. LASIX [Concomitant]
     Active Substance: FUROSEMIDE
  2. OPSUMIT [Suspect]
     Active Substance: MACITENTAN
     Indication: PULMONARY ARTERIAL HYPERTENSION
     Dosage: 10 MG, QD
     Route: 048
     Dates: start: 20180928, end: 201812
  3. COVERSYL [Concomitant]
     Active Substance: PERINDOPRIL
  4. ADCIRCA [Concomitant]
     Active Substance: TADALAFIL
  5. BISOPROLOL [Concomitant]
     Active Substance: BISOPROLOL
  6. TYLENOL EXTRA STRENGTH [Concomitant]
     Active Substance: ACETAMINOPHEN

REACTIONS (6)
  - Dry mouth [Recovering/Resolving]
  - Oedema [Recovering/Resolving]
  - Nasal congestion [Unknown]
  - Therapy non-responder [Unknown]
  - Ageusia [Recovering/Resolving]
  - Malaise [Unknown]
